FAERS Safety Report 5124030-X (Version None)
Quarter: 2006Q4

REPORT INFORMATION
  Report Type: 
  Country: None (occurrence: None)
  Receive Date: 20061010
  Receipt Date: 20060926
  Transmission Date: 20070319
  Serious: Yes (Other)
  Sender: FDA-Public Use
  Company Number: PHBS2006NO14936

PATIENT
  Age: 16 Year
  Sex: Male

DRUGS (2)
  1. TRILEPTAL [Suspect]
     Dosage: 300 MG, BID
     Dates: start: 20050401, end: 20050901
  2. TRILEPTAL [Suspect]
     Dosage: 600 MG, BID
     Route: 048
     Dates: start: 20050901

REACTIONS (14)
  - ANTINUCLEAR ANTIBODY POSITIVE [None]
  - ARTHRITIS [None]
  - DISTURBANCE IN ATTENTION [None]
  - EPILEPSY [None]
  - FALL [None]
  - FATIGUE [None]
  - JOINT SWELLING [None]
  - LOSS OF CONSCIOUSNESS [None]
  - MEMORY IMPAIRMENT [None]
  - MOUTH INJURY [None]
  - MUSCULOSKELETAL STIFFNESS [None]
  - RASH [None]
  - RASH ERYTHEMATOUS [None]
  - WOUND [None]
